FAERS Safety Report 25864792 (Version 1)
Quarter: 2025Q3

REPORT INFORMATION
  Report Type: Spontaneous
  Country: US (occurrence: None)
  Receive Date: 20250929
  Receipt Date: 20250929
  Transmission Date: 20251020
  Serious: No
  Sender: FDA-CTU
  Company Number: None

PATIENT
  Sex: Male

DRUGS (1)
  1. VYALEV [Suspect]
     Active Substance: FOSCARBIDOPA\FOSLEVODOPA
     Indication: Parkinson^s disease
     Dosage: 0.41 ML DAILY SUBCUTANEOUS?
     Route: 058
     Dates: start: 20250825

REACTIONS (4)
  - Infusion site erythema [None]
  - Pyrexia [None]
  - Asthenia [None]
  - Chromaturia [None]
